FAERS Safety Report 8837635 (Version 1)
Quarter: 2012Q4

REPORT INFORMATION
  Report Type: 
  Country: DK (occurrence: IT)
  Receive Date: 20121012
  Receipt Date: 20121012
  Transmission Date: 20130627
  Serious: Yes (Hospitalization, Other)
  Sender: FDA-Public Use
  Company Number: IT-FRI-1000037407

PATIENT
  Age: 44 Year
  Sex: Female

DRUGS (2)
  1. ESCITALOPRAM [Suspect]
     Indication: DEPRESSION
     Dosage: OVERDOSE: 300 mg
     Route: 048
     Dates: start: 20120516, end: 20120516
  2. LEXOTAN [Concomitant]
     Indication: DEPRESSION
     Dosage: 50 mg
     Route: 048
     Dates: start: 20120516, end: 20120516

REACTIONS (4)
  - Suicide attempt [Recovered/Resolved]
  - Sopor [Recovering/Resolving]
  - Intentional overdose [Recovered/Resolved]
  - Self injurious behaviour [Recovered/Resolved]
